FAERS Safety Report 8263956-5 (Version None)
Quarter: 2012Q2

REPORT INFORMATION
  Report Type: 
  Country: None (occurrence: None)
  Receive Date: 20120406
  Receipt Date: 20120330
  Transmission Date: 20120825
  Serious: Yes (Hospitalization)
  Sender: FDA-Public Use
  Company Number: US-BIOGENIDEC-2011BI031644

PATIENT
  Age: 59 Year
  Sex: Male

DRUGS (4)
  1. AVONEX [Suspect]
     Route: 030
     Dates: start: 20080203
  2. AVONEX [Suspect]
     Route: 030
     Dates: start: 20050309, end: 20071101
  3. TYLENOL [Concomitant]
     Indication: PERIPHERAL ARTERIAL OCCLUSIVE DISEASE
     Route: 048
  4. AVONEX [Suspect]
     Indication: MULTIPLE SCLEROSIS
     Route: 030
     Dates: start: 20040715, end: 20050131

REACTIONS (9)
  - NASOPHARYNGITIS [None]
  - BURNING SENSATION [None]
  - DEPRESSION [None]
  - TOE AMPUTATION [None]
  - PERIPHERAL VASCULAR DISORDER [None]
  - SCAR [None]
  - PERIPHERAL ARTERIAL OCCLUSIVE DISEASE [None]
  - VISUAL ACUITY REDUCED [None]
  - POOR PERIPHERAL CIRCULATION [None]
